FAERS Safety Report 17169968 (Version 1)
Quarter: 2019Q4

REPORT INFORMATION
  Report Type: Spontaneous
  Country: US (occurrence: US)
  Receive Date: 20191218
  Receipt Date: 20191218
  Transmission Date: 20200122
  Serious: Yes (Other)
  Sender: FDA-Public Use
  Company Number: US-BAYER-2019-225512

PATIENT
  Sex: Male

DRUGS (1)
  1. STIVARGA [Suspect]
     Active Substance: REGORAFENIB
     Indication: COLON CANCER
     Dosage: UNK

REACTIONS (7)
  - Arthralgia [None]
  - Pain [None]
  - General physical health deterioration [Not Recovered/Not Resolved]
  - Metastases to central nervous system [None]
  - Bedridden [Not Recovered/Not Resolved]
  - Fatigue [None]
  - Dysphonia [Recovering/Resolving]

NARRATIVE: CASE EVENT DATE: 2019
